FAERS Safety Report 6541880-3 (Version None)
Quarter: 2010Q1

REPORT INFORMATION
  Report Type: 
  Country: None (occurrence: None)
  Receive Date: 20100119
  Receipt Date: 20100107
  Transmission Date: 20100710
  Serious: Yes (Other)
  Sender: FDA-Public Use
  Company Number: JP-PFIZER INC-2010003451

PATIENT
  Age: 66 Year
  Sex: Male
  Weight: 65 kg

DRUGS (4)
  1. VFEND [Suspect]
     Indication: PULMONARY MYCOSIS
     Dosage: 200 MG, 2X/DAY
     Route: 042
     Dates: start: 20100105, end: 20100107
  2. VFEND [Suspect]
     Dosage: UNK
     Route: 048
     Dates: start: 20100108
  3. SOLITA T [Concomitant]
     Dosage: 200 ML FOR TWO HOURS
     Route: 042
     Dates: start: 20100105
  4. AMBISOME [Concomitant]
     Dosage: UNK
     Route: 042
     Dates: start: 20091229

REACTIONS (3)
  - DEPRESSED LEVEL OF CONSCIOUSNESS [None]
  - DIZZINESS [None]
  - INJECTION SITE EXTRAVASATION [None]
